FAERS Safety Report 13587183 (Version 4)
Quarter: 2017Q2

REPORT INFORMATION
  Report Type: Spontaneous
  Country: IT (occurrence: IT)
  Receive Date: 20170526
  Receipt Date: 20170620
  Transmission Date: 20170830
  Serious: Yes (Hospitalization, Other)
  Sender: FDA-Public Use
  Company Number: PHHY2017IT074912

PATIENT
  Age: 74 Year
  Sex: Male

DRUGS (5)
  1. LAROXYL [Interacting]
     Active Substance: AMITRIPTYLINE
     Indication: TOXICITY TO VARIOUS AGENTS
     Dosage: 20 ML, UNK
     Route: 048
     Dates: start: 20170425, end: 20170425
  2. RAMIPRIL. [Suspect]
     Active Substance: RAMIPRIL
     Indication: ACCIDENTAL POISONING
     Dosage: 17.5 MG, UNK
     Route: 048
     Dates: start: 20170425, end: 20170425
  3. TARGIN [Interacting]
     Active Substance: NALOXONE HYDROCHLORIDE\OXYCODONE HYDROCHLORIDE
     Indication: PRODUCT USED FOR UNKNOWN INDICATION
     Dosage: 840 MG, UNK
     Route: 048
     Dates: start: 20170425, end: 20170425
  4. LORAZEPAM. [Interacting]
     Active Substance: LORAZEPAM
     Indication: TOXICITY TO VARIOUS AGENTS
     Dosage: 19 MG, UNK
     Route: 048
     Dates: start: 20170425, end: 20170425
  5. COUMADIN [Interacting]
     Active Substance: WARFARIN SODIUM
     Indication: TOXICITY TO VARIOUS AGENTS
     Dosage: UNK
     Route: 048
     Dates: start: 20170425, end: 20170425

REACTIONS (10)
  - Toxicity to various agents [Unknown]
  - Intentional overdose [Unknown]
  - Drug interaction [Unknown]
  - Hyperpyrexia [Unknown]
  - Suicide attempt [Unknown]
  - Sopor [Unknown]
  - Urosepsis [Unknown]
  - Coma [Unknown]
  - Pneumonia [Unknown]
  - Drug use disorder [Unknown]

NARRATIVE: CASE EVENT DATE: 20170425
